FAERS Safety Report 25850434 (Version 1)
Quarter: 2025Q3

REPORT INFORMATION
  Report Type: Spontaneous
  Country: US (occurrence: US)
  Receive Date: 20250926
  Receipt Date: 20250926
  Transmission Date: 20251021
  Serious: Yes (Death, Hospitalization, Disabling, Other)
  Sender: CHATTEM
  Company Number: US-OPELLA-2025OHG028542

PATIENT
  Sex: Female

DRUGS (1)
  1. GOLD BOND ORIGINAL STRENGTH [Suspect]
     Active Substance: MENTHOL
     Indication: Product used for unknown indication
     Route: 065

REACTIONS (7)
  - Epithelioid mesothelioma [Fatal]
  - Exposure to chemical pollution [Fatal]
  - Cardiac arrest [Fatal]
  - Neoplasm malignant [Fatal]
  - Chemotherapy [Fatal]
  - Systemic lupus erythematosus [Fatal]
  - Hodgkin^s disease [Fatal]

NARRATIVE: CASE EVENT DATE: 20250220
